FAERS Safety Report 23176251 (Version 1)
Quarter: 2023Q4

REPORT INFORMATION
  Report Type: Report from Study
  Country: US (occurrence: US)
  Receive Date: 20231113
  Receipt Date: 20231113
  Transmission Date: 20240110
  Serious: No
  Sender: FDA-Public Use
  Company Number: US-AstraZeneca-CH-00502934A

PATIENT
  Sex: Female

DRUGS (1)
  1. SOLIRIS [Suspect]
     Active Substance: ECULIZUMAB
     Indication: Myasthenia gravis
     Dosage: UNK
     Route: 065

REACTIONS (5)
  - Illness [Not Recovered/Not Resolved]
  - Somnolence [Recovered/Resolved]
  - Fall [Recovered/Resolved]
  - Drug intolerance [Unknown]
  - Asthenia [Not Recovered/Not Resolved]
